FAERS Safety Report 14335618 (Version 2)
Quarter: 2018Q1

REPORT INFORMATION
  Report Type: Spontaneous
  Country: CA (occurrence: CA)
  Receive Date: 20171229
  Receipt Date: 20180124
  Transmission Date: 20180509
  Serious: Yes (Hospitalization)
  Sender: FDA-Public Use
  Company Number: CA-TEVA-2017-CA-838616

PATIENT
  Age: 70 Year
  Sex: Male

DRUGS (1)
  1. SPIRONOLACTONE. [Suspect]
     Active Substance: SPIRONOLACTONE
     Indication: PRODUCT USED FOR UNKNOWN INDICATION
     Dosage: 50 MILLIGRAM DAILY; STRENGTH: 25 MG, HAS BEEN USING FOR OVER A YEAR
     Route: 065

REACTIONS (4)
  - Drug hypersensitivity [Unknown]
  - Product quality issue [Unknown]
  - Product formulation issue [Unknown]
  - Cellulitis [Unknown]
